FAERS Safety Report 6165586-8 (Version None)
Quarter: 2009Q2

REPORT INFORMATION
  Report Type: 
  Country: None (occurrence: None)
  Receive Date: 20090423
  Receipt Date: 20090416
  Transmission Date: 20091009
  Serious: Yes (Hospitalization)
  Sender: FDA-Public Use
  Company Number: PL-PFIZER INC-2009200244

PATIENT

DRUGS (4)
  1. OLMESARTAN MEDOXOMIL [Suspect]
     Dosage: 20 MG, 1X/DAY
     Route: 048
     Dates: start: 20060801, end: 20060926
  2. OLMESARTAN MEDOXOMIL [Suspect]
  3. AMLODIPINE [Suspect]
  4. PYRALGIN [Concomitant]
     Indication: HEADACHE
     Dosage: 500 MG, AS NEEDED
     Route: 048
     Dates: start: 20060801

REACTIONS (1)
  - RENAL COLIC [None]
